FAERS Safety Report 5952282-2 (Version None)
Quarter: 2008Q4

REPORT INFORMATION
  Report Type: 
  Country: None (occurrence: None)
  Receive Date: 20081113
  Receipt Date: 20081107
  Transmission Date: 20090506
  Serious: Yes (Hospitalization)
  Sender: FDA-Public Use
  Company Number: AU-WATSON-2008-06605

PATIENT
  Sex: Female

DRUGS (5)
  1. TRELSTAR DEPOT [Suspect]
     Indication: HORMONE SUPPRESSION THERAPY
     Dosage: 3.75 MG, UNK
     Route: 030
     Dates: start: 20071130, end: 20080915
  2. EXEMESTANE [Suspect]
     Indication: HORMONE SUPPRESSION THERAPY
     Dosage: 25 MG
     Route: 048
     Dates: start: 20071130
  3. LISINOPRIL [Concomitant]
     Indication: HYPERTENSION
     Dosage: UNK
     Dates: start: 20050101
  4. METOPROLOL TARTRATE [Concomitant]
     Indication: HYPERTENSION
     Dosage: UNK
     Dates: start: 20050101
  5. MARCUMAR [Concomitant]
     Indication: MITRAL VALVE REPAIR
     Dosage: UNK
     Dates: start: 20040101

REACTIONS (1)
  - CEREBROVASCULAR ACCIDENT [None]
